FAERS Safety Report 15825663 (Version 1)
Quarter: 2019Q1

REPORT INFORMATION
  Report Type: Spontaneous
  Country: DE (occurrence: DE)
  Receive Date: 20190115
  Receipt Date: 20190115
  Transmission Date: 20190417
  Serious: Yes (Hospitalization)
  Sender: FDA-Public Use
  Company Number: IND-DE-009507513-1901DEU004507

PATIENT
  Age: 65 Year
  Sex: Male

DRUGS (9)
  1. ARCOXIA [Suspect]
     Active Substance: ETORICOXIB
     Dosage: 1 TABLET
     Route: 048
     Dates: start: 20181223
  2. AMLODIPINE [Concomitant]
     Active Substance: AMLODIPINE BESYLATE
     Indication: HYPERTENSION
     Dosage: UNK
  3. ARCOXIA [Suspect]
     Active Substance: ETORICOXIB
     Indication: GOUT
     Dosage: 1 TABLET
     Dates: start: 20181224
  4. ASPIRIN. [Concomitant]
     Active Substance: ASPIRIN
     Dosage: UNK
  5. TORSEMIDE. [Concomitant]
     Active Substance: TORSEMIDE
     Indication: ASCITES
     Dosage: UNK
  6. SIMVASTATIN. [Concomitant]
     Active Substance: SIMVASTATIN
     Dosage: UNK
  7. ARCOXIA [Suspect]
     Active Substance: ETORICOXIB
     Indication: GOUT
     Dosage: UNK
     Route: 048
     Dates: start: 2013
  8. ARCOXIA [Suspect]
     Active Substance: ETORICOXIB
     Dosage: 1 TABLET
     Dates: start: 20190102, end: 20190103
  9. RAMIPRIL. [Concomitant]
     Active Substance: RAMIPRIL
     Indication: HYPERTENSION
     Dosage: UNK

REACTIONS (8)
  - Weight increased [Not Recovered/Not Resolved]
  - Fluid retention [Recovered/Resolved]
  - Dyspnoea [Not Recovered/Not Resolved]
  - Fluid retention [Not Recovered/Not Resolved]
  - Oliguria [Unknown]
  - Coronary artery disease [Unknown]
  - Weight increased [Recovered/Resolved]
  - Brain natriuretic peptide increased [Unknown]

NARRATIVE: CASE EVENT DATE: 2013
